FAERS Safety Report 7659280-1 (Version None)
Quarter: 2011Q3

REPORT INFORMATION
  Report Type: 
  Country: None (occurrence: None)
  Receive Date: 20110804
  Receipt Date: 20110804
  Transmission Date: 20111222
  Serious: Yes (Other)
  Sender: FDA-Public Use
  Company Number: None

PATIENT
  Age: 19 Year
  Sex: Female
  Weight: 102.0593 kg

DRUGS (1)
  1. LINDANE [Suspect]
     Indication: LICE INFESTATION
     Dosage: 1 OUNCE
     Dates: start: 20110714

REACTIONS (1)
  - CONVULSION [None]
